FAERS Safety Report 8420914-5 (Version None)
Quarter: 2012Q2

REPORT INFORMATION
  Report Type: 
  Country: None (occurrence: None)
  Receive Date: 20120608
  Receipt Date: 20120606
  Transmission Date: 20120825
  Serious: Yes (Death)
  Sender: FDA-Public Use
  Company Number: JP-PFIZER INC-2012136768

PATIENT

DRUGS (1)
  1. CADUET [Suspect]
     Route: 048

REACTIONS (1)
  - DEATH [None]
